FAERS Safety Report 18943637 (Version 9)
Quarter: 2021Q3

REPORT INFORMATION
  Report Type: Spontaneous
  Country: US (occurrence: US)
  Receive Date: 20210226
  Receipt Date: 20210922
  Transmission Date: 20211014
  Serious: Yes (Hospitalization, Other)
  Sender: FDA-Public Use
  Company Number: US-SA-2021SA052443

PATIENT
  Age: 67 Year
  Sex: Female

DRUGS (4)
  1. CAPRELSA [Suspect]
     Active Substance: VANDETANIB
     Indication: THYROID CANCER
     Dosage: UNK
     Route: 048
     Dates: start: 20210102
  2. SYNTHROID [Concomitant]
     Active Substance: LEVOTHYROXINE SODIUM
     Dosage: 50 MG, QD
     Route: 048
  3. PARACETAMOL/PSEUDOEPHEDRINE [Suspect]
     Active Substance: ACETAMINOPHEN\PSEUDOEPHEDRINE
     Dosage: UNK
  4. CAPRELSA [Suspect]
     Active Substance: VANDETANIB
     Dosage: 300 MG, HS
     Route: 048
     Dates: start: 20210201

REACTIONS (12)
  - Acne [Unknown]
  - Diarrhoea [Unknown]
  - Vision blurred [Recovered/Resolved]
  - Colonic abscess [Unknown]
  - Nausea [Unknown]
  - Therapy interrupted [Unknown]
  - Constipation [Unknown]
  - Abdominal pain upper [Unknown]
  - Feeling abnormal [Recovered/Resolved]
  - Drug hypersensitivity [Unknown]
  - Diverticulitis [Unknown]
  - Diplopia [Recovered/Resolved]
